FAERS Safety Report 9458250 (Version 1)
Quarter: 2013Q3

REPORT INFORMATION
  Report Type: Spontaneous
  Country: US (occurrence: None)
  Receive Date: 20130813
  Receipt Date: 20130813
  Transmission Date: 20140515
  Serious: Yes (Other)
  Sender: FDA-Public Use
  Company Number: None

PATIENT
  Age: 55 Year
  Sex: Male
  Weight: 66.2 kg

DRUGS (2)
  1. CLINIMIX [Suspect]
     Route: 042
     Dates: start: 20130719
  2. CLINIMIX [Suspect]
     Dosage: LOT # P300111?EXP DATE 04/30/2015

REACTIONS (2)
  - Product colour issue [None]
  - Convulsion [None]
